FAERS Safety Report 13724474 (Version 9)
Quarter: 2018Q3

REPORT INFORMATION
  Report Type: Spontaneous
  Country: DE (occurrence: DE)
  Receive Date: 20170706
  Receipt Date: 20180914
  Transmission Date: 20181010
  Serious: Yes (Hospitalization, Other)
  Sender: FDA-Public Use
  Company Number: DE-PFIZER INC-2017284606

PATIENT
  Age: 78 Year
  Sex: Female
  Weight: 70 kg

DRUGS (8)
  1. SUTENT [Suspect]
     Active Substance: SUNITINIB MALATE
     Indication: PANCREATIC NEUROENDOCRINE TUMOUR METASTATIC
     Dosage: 37.5 MG (25MG+12.5MG), DAILY
     Dates: start: 20170203, end: 20170301
  2. DEKRISTOL [Concomitant]
     Active Substance: CHOLECALCIFEROL
     Indication: OSTEOPOROSIS
     Dosage: 1 DF, WEEKLY
  3. SUTENT [Suspect]
     Active Substance: SUNITINIB MALATE
     Dosage: 25 MG, DAILY
     Dates: start: 20170317, end: 20170406
  4. SUTENT [Suspect]
     Active Substance: SUNITINIB MALATE
     Dosage: 25 MG, DAILY
     Dates: start: 20170620
  5. SUTENT [Suspect]
     Active Substance: SUNITINIB MALATE
     Dosage: 25 MG, UNK
  6. SUTENT [Suspect]
     Active Substance: SUNITINIB MALATE
     Dosage: 37.5 MG (25MG+12.5MG), DAILY
     Dates: start: 20170407, end: 20170619
  7. MONOPROST [Concomitant]
     Active Substance: LATANOPROST
     Dosage: 1 DF, DAILY
  8. L?THYROX [Concomitant]
     Active Substance: LEVOTHYROXINE SODIUM
     Indication: DIURETIC THERAPY
     Dosage: 25 UG (1 DF), DAILY

REACTIONS (10)
  - Muscle spasms [Not Recovered/Not Resolved]
  - Cataract [Not Recovered/Not Resolved]
  - Fungal infection [Unknown]
  - Diarrhoea [Recovered/Resolved]
  - Mucosal inflammation [Recovered/Resolved]
  - Vena cava thrombosis [Recovered/Resolved]
  - Neoplasm progression [Unknown]
  - Dysphagia [Unknown]
  - Herpes zoster [Recovered/Resolved]
  - Alopecia [Unknown]

NARRATIVE: CASE EVENT DATE: 2017
